FAERS Safety Report 13087477 (Version 1)
Quarter: 2017Q1

REPORT INFORMATION
  Report Type: Spontaneous
  Country: US (occurrence: US)
  Receive Date: 20170105
  Receipt Date: 20170105
  Transmission Date: 20170428
  Serious: No
  Sender: FDA-Public Use
  Company Number: ALCN2017US000481

PATIENT
  Sex: Female
  Weight: 74.83 kg

DRUGS (1)
  1. APRACLONIDINE [Suspect]
     Active Substance: APRACLONIDINE HYDROCHLORIDE
     Indication: GLAUCOMA
     Dosage: UNK
     Route: 047
     Dates: start: 20161121

REACTIONS (1)
  - Incorrect dose administered [Not Recovered/Not Resolved]
